FAERS Safety Report 10433858 (Version 2)
Quarter: 2014Q3

REPORT INFORMATION
  Report Type: Spontaneous
  Country: US (occurrence: US)
  Receive Date: 20140905
  Receipt Date: 20140905
  Transmission Date: 20150326
  Serious: Yes (Hospitalization)
  Sender: FDA-Public Use
  Company Number: US-GLAXOSMITHKLINE-A0788279A

PATIENT
  Sex: Male

DRUGS (3)
  1. AVANDIA [Suspect]
     Active Substance: ROSIGLITAZONE MALEATE
     Indication: TYPE 2 DIABETES MELLITUS
     Route: 048
     Dates: start: 199912, end: 200406
  2. NAPROSYN [Concomitant]
     Active Substance: NAPROXEN
  3. INSULIN [Concomitant]
     Active Substance: INSULIN NOS

REACTIONS (11)
  - Coronary artery disease [Unknown]
  - Arteriosclerosis coronary artery [Unknown]
  - Cardiac failure congestive [Unknown]
  - Pleural effusion [Unknown]
  - Ventricular fibrillation [Unknown]
  - Myocardial ischaemia [Unknown]
  - Carotid artery stenosis [Unknown]
  - Cerebral infarction [Unknown]
  - Cerebrovascular accident [Unknown]
  - Transient ischaemic attack [Unknown]
  - Myocardial infarction [Unknown]
